FAERS Safety Report 9454283 (Version 1)
Quarter: 2013Q3

REPORT INFORMATION
  Report Type: Spontaneous
  Country: US (occurrence: US)
  Receive Date: 20130812
  Receipt Date: 20130812
  Transmission Date: 20140515
  Serious: Yes (Other)
  Sender: FDA-Public Use
  Company Number: US-TEVA-424341USA

PATIENT
  Age: 25 Year
  Sex: Female
  Weight: 55.39 kg

DRUGS (1)
  1. PARAGARD 380A [Suspect]
     Indication: CONTRACEPTION
     Route: 015
     Dates: start: 20110922

REACTIONS (5)
  - Pregnancy with contraceptive device [Unknown]
  - Drug ineffective [Unknown]
  - Uterine haemorrhage [Not Recovered/Not Resolved]
  - Medical device complication [Not Recovered/Not Resolved]
  - Amenorrhoea [Not Recovered/Not Resolved]
